FAERS Safety Report 10050164 (Version 1)
Quarter: 2014Q2

REPORT INFORMATION
  Report Type: Spontaneous
  Country: US (occurrence: US)
  Receive Date: 20140401
  Receipt Date: 20140401
  Transmission Date: 20141212
  Serious: No
  Sender: FDA-Public Use
  Company Number: US-009507513-1403USA012630

PATIENT
  Age: 12 Year
  Sex: Female

DRUGS (2)
  1. DULERA [Suspect]
     Indication: ASTHMA
     Dosage: TWO PUFFS, TWICE DAILY 2 PUFFS IN MORNING AND EVENING
     Route: 055
     Dates: start: 2013
  2. DULERA [Suspect]
     Indication: RESTRICTIVE PULMONARY DISEASE

REACTIONS (5)
  - Sinusitis [Recovering/Resolving]
  - Viral infection [Recovering/Resolving]
  - Respiratory rate decreased [Recovering/Resolving]
  - Underdose [Unknown]
  - Product container issue [Unknown]
